FAERS Safety Report 25538068 (Version 2)
Quarter: 2025Q3

REPORT INFORMATION
  Report Type: Spontaneous
  Country: EU (occurrence: EU)
  Receive Date: 20250710
  Receipt Date: 20250820
  Transmission Date: 20251020
  Serious: Yes (Life-Threatening, Hospitalization)
  Sender: SANDOZ
  Company Number: EU-ASTRAZENECA-202502GLO020543DE

PATIENT
  Age: 29 Year
  Sex: Female

DRUGS (11)
  1. CARBOPLATIN [Suspect]
     Active Substance: CARBOPLATIN
     Indication: Triple negative breast cancer
     Dosage: 1.5 AUC, ONCE EVERY 3 WK
     Route: 042
     Dates: start: 20240411, end: 20250206
  2. CYCLOPHOSPHAMIDE [Suspect]
     Active Substance: CYCLOPHOSPHAMIDE
     Indication: Triple negative breast cancer
     Dosage: 600 MG/M2 Q3W
     Route: 042
     Dates: start: 20250213, end: 20250213
  3. CYCLOPHOSPHAMIDE [Suspect]
     Active Substance: CYCLOPHOSPHAMIDE
     Dosage: 600 MG/M2 Q3W
     Route: 042
     Dates: start: 20250306, end: 20250417
  4. EPIRUBICIN [Suspect]
     Active Substance: EPIRUBICIN
     Indication: Triple negative breast cancer
     Dosage: 90 MG/M2, ONCE EVERY 3 WK
     Route: 042
     Dates: start: 20250213, end: 20250213
  5. EPIRUBICIN [Suspect]
     Active Substance: EPIRUBICIN
     Dosage: 90 MG/M2, ONCE EVERY 3 WK
     Route: 042
     Dates: start: 20250306, end: 20250417
  6. PACLITAXEL [Suspect]
     Active Substance: PACLITAXEL
     Indication: Triple negative breast cancer
     Route: 042
     Dates: start: 20241114, end: 20250206
  7. PEMBROLIZUMAB [Suspect]
     Active Substance: PEMBROLIZUMAB
     Indication: Triple negative breast cancer
     Dosage: 200 MG, Q3W
     Route: 042
     Dates: start: 20241114, end: 20250417
  8. GRANISETRON [Concomitant]
     Active Substance: GRANISETRON
     Indication: Nausea
     Route: 048
     Dates: start: 20241114, end: 20250206
  9. PANTOPRAZOLE SODIUM [Concomitant]
     Active Substance: PANTOPRAZOLE SODIUM
     Indication: Dyspepsia
     Route: 048
     Dates: start: 20241121
  10. Unacid [Concomitant]
     Indication: Prophylaxis
     Route: 048
     Dates: start: 20250218
  11. GOSERELIN [Concomitant]
     Active Substance: GOSERELIN
     Indication: Prophylaxis
     Route: 048
     Dates: start: 20241114

REACTIONS (1)
  - Febrile neutropenia [Recovered/Resolved]

NARRATIVE: CASE EVENT DATE: 20250222
